FAERS Safety Report 9988700 (Version 2)
Quarter: 2014Q1

REPORT INFORMATION
  Report Type: Spontaneous
  Country: CN (occurrence: CN)
  Receive Date: 20140310
  Receipt Date: 20140310
  Transmission Date: 20141002
  Serious: Yes (Other)
  Sender: FDA-Public Use
  Company Number: 2014SP001309

PATIENT
  Sex: Male

DRUGS (4)
  1. METHOTREXATE [Suspect]
     Indication: SMALL CELL LUNG CANCER
     Route: 037
  2. METHOTREXATE [Suspect]
     Indication: METASTASES TO MENINGES
     Route: 037
  3. DEXAMETHASONE [Suspect]
     Indication: SMALL CELL LUNG CANCER
     Route: 037
  4. DEXAMETHASONE [Suspect]
     Indication: METASTASES TO MENINGES
     Route: 037

REACTIONS (1)
  - Bone marrow failure [Recovering/Resolving]
